FAERS Safety Report 6919638-2 (Version None)
Quarter: 2010Q3

REPORT INFORMATION
  Report Type: 
  Country: None (occurrence: None)
  Receive Date: 20100809
  Receipt Date: 20100726
  Transmission Date: 20110219
  Serious: Yes (Hospitalization)
  Sender: FDA-Public Use
  Company Number: 2010P1000550

PATIENT
  Age: 88 Year
  Sex: Male

DRUGS (5)
  1. ALLOPURINOL [Suspect]
     Indication: HYPERURICAEMIA
  2. SPIRONOLACTONE (CON.) [Concomitant]
  3. FUROSEMIDE (CON.) [Concomitant]
  4. AMLODIPINE [Concomitant]
  5. BESILATE (CON.) [Concomitant]

REACTIONS (10)
  - ALANINE AMINOTRANSFERASE INCREASED [None]
  - ASPARTATE AMINOTRANSFERASE INCREASED [None]
  - BLOOD ALKALINE PHOSPHATASE INCREASED [None]
  - BLOOD LACTATE DEHYDROGENASE INCREASED [None]
  - CONJUNCTIVAL HYPERAEMIA [None]
  - GENITAL ULCERATION [None]
  - LEUKOCYTOSIS [None]
  - PYREXIA [None]
  - RASH PRURITIC [None]
  - RENAL IMPAIRMENT [None]
